FAERS Safety Report 8425221-2 (Version None)
Quarter: 2012Q2

REPORT INFORMATION
  Report Type: 
  Country: None (occurrence: None)
  Receive Date: 20120611
  Receipt Date: 20120529
  Transmission Date: 20120825
  Serious: Yes (Other)
  Sender: FDA-Public Use
  Company Number: US-ELI_LILLY_AND_COMPANY-US201010003839

PATIENT
  Sex: Female

DRUGS (13)
  1. FORTEO [Suspect]
     Dosage: 20 UG, QD
  2. ADVAIR DISKUS 100/50 [Concomitant]
     Dosage: UNK, QD
  3. FORTEO [Suspect]
     Dosage: 20 UG, DAILY (1/D)
  4. OXYGEN [Concomitant]
     Dosage: UNK
     Dates: start: 20100101
  5. FORTEO [Suspect]
     Dosage: 20 UG, QD
     Dates: start: 20100615
  6. SPIRIVA [Concomitant]
     Dosage: UNK, QD
  7. FORTEO [Suspect]
     Indication: OSTEOPOROSIS
     Dosage: 20 UG, DAILY (1/D)
     Dates: start: 20100505
  8. FORTEO [Suspect]
     Dosage: 20 UG, QD
  9. HYDROCHLOROTHIAZIDE [Concomitant]
     Dosage: 25 MG, QD
  10. FORTEO [Suspect]
     Dosage: 20 UG, DAILY (1/D)
  11. FORTEO [Suspect]
     Dosage: 20 UG, QD
  12. NAPROXEN [Concomitant]
     Dosage: 500 MG, QD
  13. ASPIRIN [Concomitant]
     Dosage: 325 MG, QD

REACTIONS (18)
  - PULMONARY HYPERTENSION [None]
  - CARDIAC VALVE DISEASE [None]
  - JOINT SWELLING [None]
  - BONE PAIN [None]
  - FALL [None]
  - DYSPNOEA [None]
  - DYSSTASIA [None]
  - NERVE COMPRESSION [None]
  - ARTHRALGIA [None]
  - PAIN IN EXTREMITY [None]
  - BACK DISORDER [None]
  - INJECTION SITE HAEMATOMA [None]
  - CHRONIC OBSTRUCTIVE PULMONARY DISEASE [None]
  - HERPES ZOSTER [None]
  - MALAISE [None]
  - SINUSITIS [None]
  - DENTAL OPERATION [None]
  - HYPERTENSION [None]
